FAERS Safety Report 6269478-5 (Version None)
Quarter: 2009Q3

REPORT INFORMATION
  Report Type: 
  Country: None (occurrence: None)
  Receive Date: 20090715
  Receipt Date: 20081105
  Transmission Date: 20100115
  Serious: No
  Sender: FDA-Public Use
  Company Number: US-TYCO HEALTHCARE/MALLINCKRODT-T200801911

PATIENT

DRUGS (1)
  1. OXYCODONE HCL [Suspect]
     Dosage: 30 MG, 6-8 TABS IN ONE DAY
     Route: 048
     Dates: start: 20070101

REACTIONS (1)
  - DRUG DIVERSION [None]
